FAERS Safety Report 9105077 (Version 2)
Quarter: 2013Q2

REPORT INFORMATION
  Report Type: Report from Study
  Country: CA (occurrence: CA)
  Receive Date: 20130220
  Receipt Date: 20130423
  Transmission Date: 20140414
  Serious: Yes (Other)
  Sender: FDA-Public Use
  Company Number: CA-JNJFOC-20130205563

PATIENT
  Age: 40 Year
  Sex: Male
  Weight: 89.1 kg

DRUGS (3)
  1. REMICADE [Suspect]
     Indication: CROHN^S DISEASE
     Dosage: 5MG/KG
     Route: 042
  2. UNKNOWN MEDICATION [Suspect]
     Indication: WOUND
     Route: 065
     Dates: start: 201301, end: 20130107
  3. UNKNOWN MEDICATION [Suspect]
     Indication: OEDEMA PERIPHERAL
     Route: 065
     Dates: start: 201301, end: 20130107

REACTIONS (6)
  - Wound [Recovered/Resolved]
  - Eczema [Unknown]
  - Hypersensitivity [Recovering/Resolving]
  - Oedema peripheral [Recovered/Resolved]
  - Musculoskeletal stiffness [Recovering/Resolving]
  - Blister [Recovering/Resolving]
